FAERS Safety Report 4776069-1 (Version None)
Quarter: 2005Q3

REPORT INFORMATION
  Report Type: 
  Country: None (occurrence: None)
  Receive Date: 20050914
  Receipt Date: 20050331
  Transmission Date: 20060218
  Serious: Yes (Hospitalization)
  Sender: FDA-Public Use
  Company Number: 163-20785-05030790

PATIENT
  Age: 39 Year
  Sex: Male

DRUGS (1)
  1. THALOMID [Suspect]
     Indication: BRAIN NEOPLASM
     Dosage: 200 MG, QD, ORAL
     Route: 048
     Dates: start: 20050223

REACTIONS (3)
  - EMBOLISM [None]
  - HAEMORRHAGE [None]
  - PULMONARY EMBOLISM [None]
